FAERS Safety Report 4910216-3 (Version None)
Quarter: 2006Q1

REPORT INFORMATION
  Report Type: 
  Country: None (occurrence: None)
  Receive Date: 20060209
  Receipt Date: 20060127
  Transmission Date: 20060701
  Serious: Yes (Hospitalization, Other)
  Sender: FDA-Public Use
  Company Number: 2005161696

PATIENT
  Age: 80 Year
  Sex: Female
  Weight: 63.5036 kg

DRUGS (2)
  1. LYRICA [Suspect]
     Indication: DIABETIC NEUROPATHY
     Dosage: 150 MG (75 MG, 2 IN 1 D),
     Dates: start: 20051111, end: 20051112
  2. VACCINES (VACCINES) [Suspect]
     Indication: INFLUENZA IMMUNISATION
     Dates: start: 20051111

REACTIONS (10)
  - AMNESIA [None]
  - CONFUSIONAL STATE [None]
  - COORDINATION ABNORMAL [None]
  - DYSSTASIA [None]
  - HYPOAESTHESIA [None]
  - MALAISE [None]
  - MOVEMENT DISORDER [None]
  - MUSCLE DISORDER [None]
  - SOMNOLENCE [None]
  - THINKING ABNORMAL [None]
